FAERS Safety Report 4370094-0 (Version None)
Quarter: 2004Q2

REPORT INFORMATION
  Report Type: 
  Country: None (occurrence: None)
  Receive Date: 20040527
  Receipt Date: 20040513
  Transmission Date: 20050107
  Serious: Yes (Hospitalization)
  Sender: FDA-Public Use
  Company Number: BE-JNJFOC-20040502787

PATIENT
  Age: 50 Year
  Sex: Female
  Weight: 50 kg

DRUGS (9)
  1. REMICADE [Suspect]
     Indication: CROHN'S DISEASE
     Dosage: NO DRUG ADMINISTERED
  2. AZATHIOPRINE [Concomitant]
  3. METHYLPREDNISOLONE [Concomitant]
  4. TRAMADOL HCL [Concomitant]
  5. CLOTIAZEPAM (CLOTIAZEPAM) [Concomitant]
  6. LOPERAMIDE HCL [Concomitant]
  7. CHOLESTYRAMINE (COLESTYRAMINE) [Concomitant]
  8. TRAZODONE HCL [Concomitant]
  9. ESCITALOPRAM (CITALOPRAM) [Concomitant]

REACTIONS (1)
  - CYTOMEGALOVIRUS INFECTION [None]
